FAERS Safety Report 23254635 (Version 1)
Quarter: 2023Q4

REPORT INFORMATION
  Report Type: Other
  Country: BG (occurrence: BG)
  Receive Date: 20231203
  Receipt Date: 20231203
  Transmission Date: 20240110
  Serious: Yes (Disabling, Other)
  Sender: FDA-Public Use
  Company Number: BG-DEXPHARM-20232999

PATIENT
  Age: 86 Year
  Sex: Male

DRUGS (10)
  1. VENLAFAXINE [Suspect]
     Active Substance: VENLAFAXINE HYDROCHLORIDE
  2. BISOPROLOL [Suspect]
     Active Substance: BISOPROLOL\BISOPROLOL FUMARATE
     Dosage: 2 TIMES HALF A TABLET FROM 10 YEARS
  3. OLANZAPINE [Suspect]
     Active Substance: OLANZAPINE
     Dosage: HALF A TABLET DAILY FROM 6 YEARS
  4. DIGOXIN [Concomitant]
     Active Substance: DIGOXIN
     Dosage: 1 TIME DAILY HALF A TABLET
  5. APIXABAN [Concomitant]
     Active Substance: APIXABAN
     Dosage: 2 TIMES HALF A TABLET FROM 2/3 YEARS
  6. ESOMEPRAZOLE [Concomitant]
     Active Substance: ESOMEPRAZOLE
     Dosage: ONCE DAILY HALF A TABLET / FROM 2 YEARS
  7. PREGABALIN [Concomitant]
     Active Substance: PREGABALIN
     Dosage: ONE TABLET DAILY / FROM 6 YEARS
  8. BROMAZEPAM [Concomitant]
     Active Substance: BROMAZEPAM
     Dosage: IN THE EVENING ONE OR HALF A TABLET, EVERY 2 DAYS / FROM 30 YEARS
  9. QUETIAPINE [Concomitant]
     Active Substance: QUETIAPINE
     Dosage: IN THE EVENING , ONE TO 2 TABLETS, EVERY 2 DAYS / FROM 5-6YEARS
  10. zipiclone 7.5 mg [Concomitant]
     Dosage: ONE HALF TO ONE TABLET EVERY TWO DAYS / FROM 1 YEAR

REACTIONS (1)
  - Basal cell carcinoma [Recovered/Resolved]
